FAERS Safety Report 19790471 (Version 3)
Quarter: 2021Q4

REPORT INFORMATION
  Report Type: Spontaneous
  Country: US (occurrence: US)
  Receive Date: 20210906
  Receipt Date: 20211103
  Transmission Date: 20220303
  Serious: Yes (Other)
  Sender: FDA-Public Use
  Company Number: US-JNJFOC-20210855379

PATIENT
  Age: 74 Year
  Sex: Male
  Weight: 94.432 kg

DRUGS (2)
  1. NEUTROGENA BEACH DEF WATER PLUS SUN PROTECT BR?D SPECT SPF 70 (AV\HOM\ [Suspect]
     Active Substance: AVOBENZONE\HOMOSALATE\OCTISALATE\OCTOCRYLENE
     Indication: Prophylaxis against solar radiation
     Dosage: APPLIED THE SUNSCREEN RIGHT AFTER SHAVE AND THROUGHOUT THE DAY, USED FOR YEARS
     Route: 061
  2. NEUTROGENA ULTRA SHEER SUNSCREEN BROAD SPECTRUM SPF70 (AVO\HOM\OCTI\OC [Suspect]
     Active Substance: AVOBENZONE\HOMOSALATE\OCTISALATE\OCTOCRYLENE
     Indication: Prophylaxis against solar radiation
     Dosage: APPLIED THE SUNSCREEN RIGHT AFTER SHAVE AND THROUGHOUT THE DAY, USED FOR YEARS
     Route: 061

REACTIONS (1)
  - Precancerous skin lesion [Unknown]
